FAERS Safety Report 7268543-3 (Version None)
Quarter: 2010Q4

REPORT INFORMATION
  Report Type: 
  Country: None (occurrence: None)
  Receive Date: 20101206
  Receipt Date: 20101020
  Transmission Date: 20110411
  Serious: No
  Sender: FDA-Public Use
  Company Number: 2010SP056111

PATIENT
  Age: 25 Year
  Sex: Female

DRUGS (4)
  1. SAPHRIS [Suspect]
     Indication: PRODUCT USED FOR UNKNOWN INDICATION
     Dosage: 5 MG BID,
     Dates: start: 20100101, end: 20100101
  2. PROZAC [Concomitant]
  3. ABILIFY [Concomitant]
  4. COGENTIN [Concomitant]

REACTIONS (1)
  - PAIN [None]
